FAERS Safety Report 8438006-8 (Version None)
Quarter: 2012Q2

REPORT INFORMATION
  Report Type: 
  Country: None (occurrence: None)
  Receive Date: 20120614
  Receipt Date: 20120606
  Transmission Date: 20120825
  Serious: Yes (Hospitalization)
  Sender: FDA-Public Use
  Company Number: US-AMGEN-USASP2012024820

PATIENT
  Sex: Male
  Weight: 181.4 kg

DRUGS (2)
  1. JEVTANA KIT [Concomitant]
  2. XGEVA [Suspect]
     Indication: PROPHYLAXIS

REACTIONS (2)
  - URINARY TRACT INFECTION [None]
  - DYSPNOEA [None]
